FAERS Safety Report 8445974-7 (Version None)
Quarter: 2012Q2

REPORT INFORMATION
  Report Type: 
  Country: None (occurrence: None)
  Receive Date: 20120618
  Receipt Date: 20120612
  Transmission Date: 20120825
  Serious: No
  Sender: FDA-Public Use
  Company Number: US-PFIZER INC-2012051605

PATIENT
  Sex: Female
  Weight: 61.224 kg

DRUGS (2)
  1. PREMARIN [Suspect]
     Dosage: UNK, 1/2 APPLICATOR 2 TIMES A WEEK
     Route: 067
  2. PREMARIN [Suspect]
     Indication: VULVOVAGINAL DRYNESS
     Dosage: UNK, AS NEEDED
     Route: 067
     Dates: start: 20120201, end: 20120202

REACTIONS (2)
  - DYSPNOEA [None]
  - HEADACHE [None]
